FAERS Safety Report 25792158 (Version 4)
Quarter: 2025Q4

REPORT INFORMATION
  Report Type: Spontaneous
  Country: US (occurrence: US)
  Receive Date: 20250911
  Receipt Date: 20251222
  Transmission Date: 20260117
  Serious: No
  Sender: SANOFI AVENTIS
  Company Number: US-SA-2025SA270429

PATIENT
  Age: 25 Year
  Sex: Female

DRUGS (3)
  1. DUPIXENT [Suspect]
     Active Substance: DUPILUMAB
     Indication: Eczema
     Dosage: 600 MG, 1X
     Route: 058
     Dates: start: 202501, end: 202501
  2. DUPIXENT [Suspect]
     Active Substance: DUPILUMAB
     Indication: Dermatitis atopic
     Dosage: 300 MG, QOW
     Route: 058
     Dates: start: 2025, end: 2025
  3. DUPIXENT [Suspect]
     Active Substance: DUPILUMAB
     Indication: Neurodermatitis
     Dosage: 300 MG, QW
     Route: 058
     Dates: start: 202508

REACTIONS (5)
  - Rash macular [Unknown]
  - Rosacea [Unknown]
  - Eczema [Unknown]
  - Injection site bruising [Unknown]
  - Off label use [Unknown]

NARRATIVE: CASE EVENT DATE: 20250101
